FAERS Safety Report 13975928 (Version 2)
Quarter: 2017Q3

REPORT INFORMATION
  Report Type: Spontaneous
  Country: IN (occurrence: IN)
  Receive Date: 20170915
  Receipt Date: 20170928
  Transmission Date: 20171128
  Serious: Yes (Other)
  Sender: FDA-Public Use
  Company Number: IN-PFIZER INC-2017037051

PATIENT
  Age: 56 Year
  Sex: Female

DRUGS (2)
  1. PALBACE [Suspect]
     Active Substance: PALBOCICLIB
     Indication: BREAST CANCER METASTATIC
     Dosage: 125 MG, 1X/DAY
     Route: 048
     Dates: start: 20161022
  2. FULVESTRANT. [Concomitant]
     Active Substance: FULVESTRANT
     Dosage: 500 MG, 1X/DAY
     Dates: start: 20170122

REACTIONS (6)
  - Gait inability [Unknown]
  - Hemiparesis [Unknown]
  - Paresis [Recovering/Resolving]
  - Product use in unapproved indication [Unknown]
  - Malaise [Unknown]
  - Neoplasm progression [Unknown]
